FAERS Safety Report 4366436-2 (Version None)
Quarter: 2004Q2

REPORT INFORMATION
  Report Type: 
  Country: None (occurrence: None)
  Receive Date: 20040527
  Receipt Date: 20040324
  Transmission Date: 20050107
  Serious: No
  Sender: FDA-Public Use
  Company Number: US-BRISTOL-MYERS SQUIBB COMPANY-12540928

PATIENT
  Age: 59 Year
  Sex: Male
  Weight: 90 kg

DRUGS (2)
  1. ERBITUX [Suspect]
     Indication: COLON CANCER METASTATIC
     Dosage: ^400 METER SQUARE^; 24MAR04 DOSE HELD DUE TO EVENT
     Route: 042
     Dates: start: 20040317, end: 20040317
  2. IRINOTECAN [Concomitant]

REACTIONS (1)
  - DERMATITIS ACNEIFORM [None]
